FAERS Safety Report 8457395 (Version 5)
Quarter: 2013Q2

REPORT INFORMATION
  Report Type: Spontaneous
  Country: DE (occurrence: DE)
  Receive Date: 20120314
  Receipt Date: 20130503
  Transmission Date: 20140414
  Serious: Yes (Hospitalization, Other)
  Sender: FDA-Public Use
  Company Number: DE-ELI_LILLY_AND_COMPANY-DE201203000441

PATIENT
  Age: 71 Year
  Sex: Female

DRUGS (18)
  1. FORSTEO [Suspect]
     Indication: OSTEOPOROSIS
     Dosage: UNK, QD
     Route: 058
     Dates: start: 20120124
  2. BISOPROLOL [Concomitant]
     Dosage: 5 MG, UNK
  3. METOCLOPRAMID [Concomitant]
  4. JODETTEN [Concomitant]
     Dosage: UNK, ONCE WEEKLY
  5. MORPHINE [Concomitant]
  6. CORTISONE [Concomitant]
     Dosage: 7.5 MG, UNK
  7. VIGANTOLETTEN [Concomitant]
     Dosage: 1000 UNK
  8. ASPIRIN [Concomitant]
  9. PANTOPRAZOL [Concomitant]
     Dosage: 40, UNK
  10. RAMIPRIL [Concomitant]
     Dosage: 5UNK
  11. HCT [Concomitant]
     Dosage: 25UNK
  12. AMLODIPINE [Concomitant]
  13. MIRTAZAPIN [Concomitant]
     Dosage: 30UNK
  14. PREDNISONE [Concomitant]
     Dosage: 20MG, UNK
  15. PREDNISONE [Concomitant]
     Dosage: 2.5MG, EVERY 3 WEEKS
  16. PREDNISONE [Concomitant]
     Dosage: 5MG, UNK
  17. IBUPROFEN [Concomitant]
     Dosage: 600UNK, AS NEEDED
  18. CALCIUM [Concomitant]

REACTIONS (15)
  - Dizziness [Not Recovered/Not Resolved]
  - Epigastric discomfort [Not Recovered/Not Resolved]
  - Iron deficiency [Not Recovered/Not Resolved]
  - Headache [Not Recovered/Not Resolved]
  - Nausea [Not Recovered/Not Resolved]
  - Hypoaesthesia oral [Not Recovered/Not Resolved]
  - C-reactive protein increased [Recovering/Resolving]
  - Speech disorder [Not Recovered/Not Resolved]
  - Hiatus hernia [Unknown]
  - Hypertension [Unknown]
  - Polymyalgia rheumatica [Unknown]
  - Polycythaemia [Unknown]
  - Vomiting [Not Recovered/Not Resolved]
  - Cerebral microangiopathy [Unknown]
  - Cerebrovascular accident [Not Recovered/Not Resolved]
